FAERS Safety Report 15475583 (Version 1)
Quarter: 2018Q4

REPORT INFORMATION
  Report Type: Spontaneous
  Country: US (occurrence: US)
  Receive Date: 20181008
  Receipt Date: 20181008
  Transmission Date: 20190205
  Serious: No
  Sender: FDA-Public Use
  Company Number: US-LEXICON PHARMACEUTICALS, INC-18-1606-01121

PATIENT
  Sex: Female

DRUGS (13)
  1. GRANISETRON [Concomitant]
     Active Substance: GRANISETRON
  2. ONDANSETRON [Concomitant]
     Active Substance: ONDANSETRON
  3. CYMBALTA [Concomitant]
     Active Substance: DULOXETINE HYDROCHLORIDE
  4. MEGESTROL AC [Concomitant]
  5. SANDOSTATIN [Concomitant]
     Active Substance: OCTREOTIDE ACETATE
  6. DICYCLOMINE [Concomitant]
     Active Substance: DICYCLOMINE HYDROCHLORIDE
  7. IMODIUM A-D [Concomitant]
     Active Substance: LOPERAMIDE HYDROCHLORIDE
  8. TELOTRISTAT ETHYL [Suspect]
     Active Substance: TELOTRISTAT ETHYL
     Indication: CARCINOID SYNDROME
     Route: 048
     Dates: start: 20180817
  9. ALEVE [Concomitant]
     Active Substance: NAPROXEN SODIUM
  10. LAMICTAL [Concomitant]
     Active Substance: LAMOTRIGINE
  11. MIRALAX [Concomitant]
     Active Substance: POLYETHYLENE GLYCOL 3350
  12. OXYCODONE POW HCL [Concomitant]
  13. SPIRONOLACTONE. [Concomitant]
     Active Substance: SPIRONOLACTONE

REACTIONS (2)
  - Diarrhoea [Recovering/Resolving]
  - Nausea [Recovering/Resolving]
